FAERS Safety Report 20429369 (Version 1)
Quarter: 2022Q1

REPORT INFORMATION
  Report Type: Spontaneous
  Country: US (occurrence: US)
  Receive Date: 20220204
  Receipt Date: 20220204
  Transmission Date: 20220423
  Serious: Yes (Other)
  Sender: FDA-Public Use
  Company Number: US-BRISTOL-MYERS SQUIBB COMPANY-BMS-2022-016226

PATIENT
  Age: 71 Year
  Sex: Female

DRUGS (1)
  1. IPILIMUMAB [Suspect]
     Active Substance: IPILIMUMAB
     Indication: Acral lentiginous melanoma
     Dosage: UNK
     Route: 065
     Dates: start: 201111

REACTIONS (3)
  - Colitis [Not Recovered/Not Resolved]
  - Rash [Not Recovered/Not Resolved]
  - Oral disorder [Not Recovered/Not Resolved]
